FAERS Safety Report 24713345 (Version 1)
Quarter: 2024Q4

REPORT INFORMATION
  Report Type: Report from Study
  Country: US (occurrence: US)
  Receive Date: 20241209
  Receipt Date: 20241209
  Transmission Date: 20250115
  Serious: Yes (Other)
  Sender: JAZZ
  Company Number: US-JAZZ PHARMACEUTICALS-2024-US-022960

PATIENT
  Sex: Male

DRUGS (8)
  1. XYREM [Suspect]
     Active Substance: SODIUM OXYBATE
     Indication: Insomnia
     Dosage: UNK
  2. DILT [Concomitant]
     Indication: Product used for unknown indication
     Dosage: UNK
     Dates: start: 20240325
  3. FUROSEMIDE [Concomitant]
     Active Substance: FUROSEMIDE
     Indication: Product used for unknown indication
     Dosage: UNK
     Dates: start: 20240328
  4. OLMESARTAN MEDOXOMIL [Concomitant]
     Active Substance: OLMESARTAN MEDOXOMIL
     Indication: Product used for unknown indication
     Dosage: UNK
     Dates: start: 20240328
  5. OXCARBAZEPINE [Concomitant]
     Active Substance: OXCARBAZEPINE
     Indication: Product used for unknown indication
     Dosage: UNK
     Dates: start: 20240517
  6. ROSUVASTATIN CALCIUM [Concomitant]
     Active Substance: ROSUVASTATIN CALCIUM
     Indication: Product used for unknown indication
     Dosage: UNK
     Dates: start: 20240108
  7. SODIUM CHLORIDE [Concomitant]
     Active Substance: SODIUM CHLORIDE
     Indication: Product used for unknown indication
     Dosage: UNK
     Dates: start: 20231117
  8. TIMOLOL MALEATE [Concomitant]
     Active Substance: TIMOLOL MALEATE
     Indication: Product used for unknown indication
     Dosage: UNK
     Dates: start: 20210922

REACTIONS (2)
  - Neuropathy peripheral [Unknown]
  - Product administration interrupted [Unknown]
